FAERS Safety Report 24870836 (Version 6)
Quarter: 2025Q2

REPORT INFORMATION
  Report Type: Report from Study
  Country: CA (occurrence: CA)
  Receive Date: 20250121
  Receipt Date: 20250523
  Transmission Date: 20250716
  Serious: Yes (Other)
  Sender: JOHNSON AND JOHNSON
  Company Number: CA-JNJFOC-20250147620

PATIENT
  Age: 67 Year
  Sex: Female
  Weight: 73.48 kg

DRUGS (3)
  1. SIMPONI [Suspect]
     Active Substance: GOLIMUMAB
     Indication: Rheumatoid arthritis
     Route: 058
  2. SIMPONI [Suspect]
     Active Substance: GOLIMUMAB
     Route: 058
     Dates: start: 20210311
  3. SIMPONI [Suspect]
     Active Substance: GOLIMUMAB
     Dosage: EXPIRY DATE:JN-2027
     Route: 058

REACTIONS (2)
  - Lower respiratory tract infection [Recovering/Resolving]
  - Rhinorrhoea [Unknown]

NARRATIVE: CASE EVENT DATE: 20240101
